FAERS Safety Report 5962929-2 (Version None)
Quarter: 2008Q4

REPORT INFORMATION
  Report Type: 
  Country: None (occurrence: None)
  Receive Date: 20081117
  Receipt Date: 20081117
  Transmission Date: 20090506
  Serious: Yes (Hospitalization)
  Sender: FDA-Public Use
  Company Number: None

PATIENT
  Sex: Male
  Weight: 104 kg

DRUGS (9)
  1. LENALIDOMIDE [Suspect]
     Indication: HODGKIN'S DISEASE
     Dosage: 25MG QDAY PO
     Route: 048
     Dates: start: 20080716
  2. OXYCODONE HCL [Concomitant]
  3. MORPHINE [Concomitant]
  4. GABAPENTIN [Concomitant]
  5. SONOKOT [Concomitant]
  6. ASPIRIN [Concomitant]
  7. AVALIDE [Concomitant]
  8. MULTI-VITAMIN [Concomitant]
  9. ALLOPURINOL [Concomitant]

REACTIONS (4)
  - ABDOMINAL PAIN [None]
  - OEDEMA [None]
  - OEDEMA PERIPHERAL [None]
  - PLEURAL EFFUSION [None]
